FAERS Safety Report 15113804 (Version 2)
Quarter: 2018Q3

REPORT INFORMATION
  Report Type: Report from Study
  Country: US (occurrence: US)
  Receive Date: 20180706
  Receipt Date: 20180809
  Transmission Date: 20181010
  Serious: Yes (Other)
  Sender: FDA-Public Use
  Company Number: PHEH2018US026841

PATIENT
  Sex: Female

DRUGS (1)
  1. AFINITOR [Suspect]
     Active Substance: EVEROLIMUS
     Indication: ASTROCYTOMA, LOW GRADE
     Dosage: 2.5 MG, QOD
     Route: 048
     Dates: start: 20140703

REACTIONS (3)
  - Wolff-Parkinson-White syndrome [Unknown]
  - Supraventricular tachycardia [Unknown]
  - Drug level increased [Unknown]
